FAERS Safety Report 5214784-6 (Version None)
Quarter: 2006Q4

REPORT INFORMATION
  Report Type: 
  Country: None (occurrence: None)
  Receive Date: 20061113
  Receipt Date: 20060317
  Transmission Date: 20070319
  Serious: Yes (Hospitalization)
  Sender: FDA-Public Use
  Company Number: US-JNJFOC-20060304853

PATIENT
  Age: 57 Year
  Sex: Female

DRUGS (7)
  1. LEVAQUIN [Suspect]
     Indication: DRUG USE FOR UNKNOWN INDICATION
     Dosage: 250 MG, 1 IN 1 DAY, INTRAVENOUS
     Route: 042
     Dates: start: 20060314, end: 20060316
  2. FOLIC ACID [Concomitant]
  3. THIAMINE (THIAMINE) [Concomitant]
  4. MUCINEX [Concomitant]
  5. NOVALOG (METAMIZOLE SODIUM) [Concomitant]
  6. PROTONIX [Concomitant]
  7. PEPCID [Concomitant]

REACTIONS (1)
  - INTERNATIONAL NORMALISED RATIO INCREASED [None]
